FAERS Safety Report 14457872 (Version 2)
Quarter: 2018Q2

REPORT INFORMATION
  Report Type: Spontaneous
  Country: GB (occurrence: GB)
  Receive Date: 20180130
  Receipt Date: 20180522
  Transmission Date: 20180711
  Serious: Yes (Hospitalization, Other)
  Sender: FDA-Public Use
  Company Number: GB-NOVOPROD-580828

PATIENT
  Age: 60 Year
  Sex: Male
  Weight: 96 kg

DRUGS (21)
  1. CODEINE [Concomitant]
     Active Substance: CODEINE
     Dosage: 15MG TABLETS, 1-2 FOUR TIMES A DAY WHEN REQUIRED
  2. ZEROBASE                           /00103901/ [Concomitant]
     Dosage: APPLY FREQUENTLY TO AFFECTED AREA TO REPLACE DIPROBASE
  3. LOPERAMIDE [Concomitant]
     Active Substance: LOPERAMIDE
     Dosage: 2MG CAPSULES  AS NEEDED
  4. PARACETAMOL [Concomitant]
     Active Substance: ACETAMINOPHEN
     Dosage: 500MG TABLETS TWO TO BE TAKENE VERY 4-6 HOURS UP TO FOUR TIMES A DAY
  5. RAMIPRIL A [Concomitant]
     Active Substance: RAMIPRIL
     Dosage: 2.5MG CAPSULES ONE AT NIGHT
  6. ACICLOVIR                          /00587302/ [Concomitant]
     Dosage: APPLY FIVE TIMES A DAY
  7. PREGABALIN. [Concomitant]
     Active Substance: PREGABALIN
     Dosage: 200MG CAPSULES TAKE ONE AT NIGHT
  8. MOMETASONE [Concomitant]
     Active Substance: MOMETASONE
     Dosage: 50MICROGRAMS/DOSE NASAL SPRAY, TWO SPRAYS DAILY
  9. OPTIVE FUSION                      /06256801/ [Concomitant]
     Dosage: 0.1% EYE DROPS PRN TO BOTH EYES
  10. NOVORAPID [Suspect]
     Active Substance: INSULIN ASPART
     Indication: TYPE 1 DIABETES MELLITUS
     Dosage: 24 U, TID
     Route: 058
     Dates: start: 200803
  11. NOVORAPID [Suspect]
     Active Substance: INSULIN ASPART
     Dosage: 17 U, QD
     Route: 058
  12. QUININE SULFATE. [Concomitant]
     Active Substance: QUININE SULFATE
     Dosage: 200MG TABLETS ONE TO BE TAKEN AT NIGHT
  13. BISOPROLOL [Concomitant]
     Active Substance: BISOPROLOL
     Dosage: 1.25MG TABLETS ONE TO BE TAKEN EACH  DAY
  14. FENBID [Concomitant]
     Active Substance: IBUPROFEN
     Dosage: APPLY UP TO THREE  TIMES A DAY
  15. ATORVASTATIN [Concomitant]
     Active Substance: ATORVASTATIN
     Dosage: 20MG TABLETS ONE TO BE TAKEN EACH  DAY
  16. TAMSULOSIN [Concomitant]
     Active Substance: TAMSULOSIN
     Dosage: 400MICROGRAM MODIFIED-RELEASE CAPSULES ONE TO BE TAKEN EACH  DAY
  17. HYOSCINE BUTYLBROMIDE [Concomitant]
     Active Substance: BUTYLSCOPOLAMINE
     Dosage: 10MG TABLETS, 2 THREE TIMES A DAY BEFORE MEALS
  18. GLUCOSE [Concomitant]
     Active Substance: DEXTROSE
     Dosage: FOR USE IF HYPOGLYCAEMIC
     Route: 048
  19. LANSOPRAZOLE. [Concomitant]
     Active Substance: LANSOPRAZOLE
     Dosage: 30MG GASTRO-RESISTANT CAPSULES ONE TO BE TAKEN EACH  MORNING
  20. LACTULOSE. [Concomitant]
     Active Substance: LACTULOSE
     Dosage: 3.1-3.7G/5ML ORAL SOLUTION 5ML TWICE DAILY AS  NEEDED
  21. LANTUS XR [Concomitant]
     Active Substance: INSULIN GLARGINE
     Dosage: UNK

REACTIONS (3)
  - Renal impairment [Recovered/Resolved]
  - Head injury [Recovered/Resolved]
  - Hypoglycaemia [Not Recovered/Not Resolved]

NARRATIVE: CASE EVENT DATE: 20180108
